FAERS Safety Report 8249982-0 (Version None)
Quarter: 2012Q2

REPORT INFORMATION
  Report Type: 
  Country: None (occurrence: None)
  Receive Date: 20120402
  Receipt Date: 20120320
  Transmission Date: 20120825
  Serious: Yes (Hospitalization)
  Sender: FDA-Public Use
  Company Number: US-SANOFI-AVENTIS-2012SA019921

PATIENT
  Age: 76 Year
  Sex: Male

DRUGS (14)
  1. DOCETAXEL [Suspect]
     Indication: PROSTATE CANCER
     Route: 041
     Dates: start: 20110429, end: 20110429
  2. WARFARIN SODIUM [Concomitant]
     Route: 048
  3. WARFARIN SODIUM [Concomitant]
     Route: 048
  4. ALL OTHER THERAPEUTIC PRODUCTS [Concomitant]
     Route: 048
  5. ENOXAPARIN SODIUM [Concomitant]
     Route: 058
  6. ANTINEOPLASTIC AGENTS [Suspect]
     Indication: PROSTATE CANCER
     Route: 042
  7. PREDNISONE TAB [Concomitant]
     Route: 048
     Dates: start: 20111020
  8. ESOMEPRAZOLE MAGNESIUM [Concomitant]
     Route: 048
     Dates: start: 20110331
  9. PROMETHAZINE [Concomitant]
     Route: 048
     Dates: start: 20110404
  10. AMOXICILLIN [Concomitant]
     Route: 048
     Dates: start: 20110909
  11. DOCETAXEL [Suspect]
     Route: 041
     Dates: start: 20111123, end: 20111123
  12. IMIPRAMINE HCL [Concomitant]
     Indication: MIGRAINE
     Route: 048
  13. ONDANSETRON [Concomitant]
     Route: 048
  14. METHYLPREDNISOLONE [Concomitant]
     Route: 048
     Dates: start: 20110920

REACTIONS (1)
  - CHOLECYSTITIS [None]
